APPROVED DRUG PRODUCT: BUDESONIDE
Active Ingredient: BUDESONIDE
Strength: 0.5MG/2ML
Dosage Form/Route: SUSPENSION;INHALATION
Application: A210897 | Product #001 | TE Code: AN
Applicant: LUPIN INC
Approved: Nov 9, 2018 | RLD: No | RS: No | Type: RX